FAERS Safety Report 7790352-7 (Version None)
Quarter: 2011Q3

REPORT INFORMATION
  Report Type: 
  Country: None (occurrence: None)
  Receive Date: 20110930
  Receipt Date: 20110918
  Transmission Date: 20111222
  Serious: Yes (Other)
  Sender: FDA-Public Use
  Company Number: DE-SANOFI-AVENTIS-2011SA063880

PATIENT
  Age: 28 Year
  Sex: Female

DRUGS (3)
  1. DESMOPRESSIN ACETATE [Suspect]
     Indication: POSTPARTUM HAEMORRHAGE
  2. DINOPROSTONE [Concomitant]
  3. BLOOD TRANSFUSION, AUXILIARY PRODUCTS [Concomitant]
     Indication: DISSEMINATED INTRAVASCULAR COAGULATION

REACTIONS (1)
  - THROMBOTIC THROMBOCYTOPENIC PURPURA [None]
